FAERS Safety Report 8021945-X (Version None)
Quarter: 2012Q1

REPORT INFORMATION
  Report Type: 
  Country: None (occurrence: None)
  Receive Date: 20120104
  Receipt Date: 20111229
  Transmission Date: 20120608
  Serious: Yes (Death, Hospitalization, Other)
  Sender: FDA-Public Use
  Company Number: AU-SANOFI-AVENTIS-2011SA082570

PATIENT
  Age: 51 Year
  Sex: Female
  Weight: 53.4 kg

DRUGS (5)
  1. DOCETAXEL [Suspect]
     Dosage: EVERY 21 DAYS
     Route: 041
     Dates: start: 20111117, end: 20111117
  2. MS CONTIN [Concomitant]
  3. BLINDED THERAPY [Suspect]
     Dosage: 21 DAY CYCLE
     Route: 042
     Dates: start: 20111117, end: 20111117
  4. ACETAMINOPHEN [Concomitant]
     Dates: end: 20111126
  5. OXYCODONE HCL [Concomitant]

REACTIONS (2)
  - ENTEROCOLITIS [None]
  - OVERDOSE [None]
